FAERS Safety Report 6108223-0 (Version None)
Quarter: 2009Q1

REPORT INFORMATION
  Report Type: 
  Country: None (occurrence: None)
  Receive Date: 20090305
  Receipt Date: 20090305
  Transmission Date: 20090719
  Serious: Yes (Hospitalization)
  Sender: FDA-Public Use
  Company Number: None

PATIENT
  Age: 64 Year
  Sex: Male
  Weight: 66.1 kg

DRUGS (1)
  1. PHENYTOIN [Suspect]
     Indication: CONVULSION
     Dosage: 100 MG TID IV
     Route: 042
     Dates: start: 20081217, end: 20081217

REACTIONS (6)
  - ANTICONVULSANT DRUG LEVEL INCREASED [None]
  - CONJUNCTIVITIS INFECTIVE [None]
  - EYE DISORDER [None]
  - GINGIVITIS [None]
  - ORAL DISORDER [None]
  - STEVENS-JOHNSON SYNDROME [None]
